FAERS Safety Report 9601265 (Version 2)
Quarter: 2013Q4

REPORT INFORMATION
  Report Type: Spontaneous
  Country: DE (occurrence: DE)
  Receive Date: 20131006
  Receipt Date: 20131118
  Transmission Date: 20140711
  Serious: Yes (Hospitalization)
  Sender: FDA-Public Use
  Company Number: GXKR2013DE003169

PATIENT
  Sex: Male

DRUGS (2)
  1. LEUPRONE HEXAL [Suspect]
  2. MARCUMAR [Concomitant]
     Route: 048

REACTIONS (2)
  - Procedural complication [Recovered/Resolved]
  - Haemorrhage [Recovered/Resolved]
